FAERS Safety Report 9802206 (Version 1)
Quarter: 2014Q1

REPORT INFORMATION
  Report Type: Spontaneous
  Country: US (occurrence: US)
  Receive Date: 20140107
  Receipt Date: 20140107
  Transmission Date: 20141002
  Serious: Yes (Death)
  Sender: FDA-Public Use
  Company Number: US-GLAXOSMITHKLINE-A1055617A

PATIENT
  Age: 77 Year
  Sex: Male

DRUGS (1)
  1. TYKERB [Suspect]
     Indication: TRANSITIONAL CELL CARCINOMA
     Dosage: 250MG UNKNOWN
     Dates: start: 20130604

REACTIONS (2)
  - Transitional cell carcinoma [Fatal]
  - Disease progression [Fatal]
